FAERS Safety Report 6154353-7 (Version None)
Quarter: 2009Q2

REPORT INFORMATION
  Report Type: 
  Country: None (occurrence: None)
  Receive Date: 20090410
  Receipt Date: 20090325
  Transmission Date: 20091009
  Serious: Yes (Other)
  Sender: FDA-Public Use
  Company Number: 8043866

PATIENT
  Age: 11 Year
  Sex: Male
  Weight: 47 kg

DRUGS (2)
  1. EQUASYM [Suspect]
     Dosage: 5 MG PO
     Route: 048
  2. CONCERTA [Suspect]
     Dosage: 36 MG PO
     Route: 048

REACTIONS (2)
  - ACCIDENTAL EXPOSURE [None]
  - ALANINE AMINOTRANSFERASE INCREASED [None]
